FAERS Safety Report 8229645-8 (Version None)
Quarter: 2012Q1

REPORT INFORMATION
  Report Type: 
  Country: None (occurrence: None)
  Receive Date: 20120322
  Receipt Date: 20120315
  Transmission Date: 20120608
  Serious: Yes (Hospitalization)
  Sender: FDA-Public Use
  Company Number: PHHY2012CA009489

PATIENT
  Sex: Female

DRUGS (6)
  1. SYNTHROID [Concomitant]
     Dosage: 25 MG,
  2. ZOLEDRONOC ACID [Suspect]
     Indication: OSTEOPOROSIS
     Route: 042
     Dates: start: 20100126
  3. ZOLEDRONOC ACID [Suspect]
     Route: 042
     Dates: start: 20110126
  4. ZOCOR [Concomitant]
  5. ZOLEDRONOC ACID [Suspect]
     Route: 042
     Dates: start: 20120124
  6. ATIVAN [Concomitant]
     Dosage: 1 MG,

REACTIONS (5)
  - BLOOD PRESSURE DECREASED [None]
  - NAUSEA [None]
  - FLANK PAIN [None]
  - ABDOMINAL PAIN [None]
  - DIZZINESS [None]
